FAERS Safety Report 4761262-4 (Version None)
Quarter: 2005Q3

REPORT INFORMATION
  Report Type: 
  Country: None (occurrence: None)
  Receive Date: 20050901
  Receipt Date: 20050819
  Transmission Date: 20060218
  Serious: Yes (Disabling)
  Sender: FDA-Public Use
  Company Number: 2005113024

PATIENT
  Age: 81 Year
  Sex: Female
  Weight: 58 kg

DRUGS (7)
  1. NEURONTIN [Suspect]
     Indication: TRIGEMINAL NEURALGIA
     Dosage: 2400 MG (DAILY), ORAL
     Route: 048
  2. ATENOLOL [Concomitant]
  3. WARFARIN SODIUM [Concomitant]
  4. LEVOTHYROXINE SODIUM [Concomitant]
  5. CALCICHEW-D3 (CALCIUM CARBONATE, COLCECALCIFEROL) [Concomitant]
  6. ALENDRONIC ACID (ALENDRONIC ACID) [Concomitant]
  7. SIMVASTATIN [Concomitant]

REACTIONS (5)
  - ANXIETY [None]
  - DRUG WITHDRAWAL SYNDROME [None]
  - INSOMNIA [None]
  - NAUSEA [None]
  - WEIGHT DECREASED [None]
